FAERS Safety Report 6422926-X (Version None)
Quarter: 2009Q4

REPORT INFORMATION
  Report Type: 
  Country: None (occurrence: None)
  Receive Date: 20091102
  Receipt Date: 20091019
  Transmission Date: 20100525
  Serious: Yes (Other)
  Sender: FDA-Public Use
  Company Number: PHHY2009JP43653

PATIENT
  Age: 60 Year
  Sex: Female

DRUGS (4)
  1. VOLTAREN [Suspect]
     Indication: PAIN MANAGEMENT
     Dosage: 100 MG PER DAY
     Route: 054
  2. PROPOFOL [Concomitant]
     Indication: ANAESTHESIA
     Dosage: 40 ML, UNK
  3. REMIFENTANIL HYDROCHLORIDE [Concomitant]
     Indication: ANAESTHESIA
  4. ROPIVACAINE [Concomitant]
     Indication: INFILTRATION ANAESTHESIA
     Dosage: 0.5% (TOTAL 40 ML)

REACTIONS (5)
  - CERVICOBRACHIAL SYNDROME [None]
  - GLOSSOPTOSIS [None]
  - MUSCULOSKELETAL DISCOMFORT [None]
  - PERIPHERAL PARALYSIS [None]
  - RESPIRATORY RATE DECREASED [None]
